FAERS Safety Report 20826170 (Version 2)
Quarter: 2022Q3

REPORT INFORMATION
  Report Type: Spontaneous
  Country: IN (occurrence: IN)
  Receive Date: 20220513
  Receipt Date: 20220801
  Transmission Date: 20221027
  Serious: Yes (Hospitalization)
  Sender: FDA-Public Use
  Company Number: IN-PFIZER INC-202200050077

PATIENT
  Age: 60 Year
  Sex: Female

DRUGS (1)
  1. PALBOCICLIB [Suspect]
     Active Substance: PALBOCICLIB
     Dosage: 125 MG
     Route: 048
     Dates: start: 20210503, end: 20211230

REACTIONS (4)
  - Malaise [Unknown]
  - Blood potassium decreased [Unknown]
  - General physical health deterioration [Unknown]
  - Neoplasm progression [Not Recovered/Not Resolved]
